FAERS Safety Report 5488988-1 (Version None)
Quarter: 2007Q4

REPORT INFORMATION
  Report Type: 
  Country: None (occurrence: None)
  Receive Date: 20071016
  Receipt Date: 20071001
  Transmission Date: 20080405
  Serious: Yes (Hospitalization)
  Sender: FDA-Public Use
  Company Number: 02100-JPN-07-0420

PATIENT
  Age: 81 Year
  Sex: Male

DRUGS (5)
  1. CILOSTAZOL [Suspect]
     Indication: CEREBRAL INFARCTION
     Dosage: ONE OF 200 MG OR 81 MG ORAL
     Route: 048
     Dates: start: 20050604, end: 20070704
  2. CILOSTAZOL [Suspect]
     Indication: CEREBRAL INFARCTION
     Dosage: ONE OF 200 MG OR 81 MG ORAL
     Route: 048
     Dates: start: 20070713, end: 20070913
  3. KETOPROFEN [Concomitant]
  4. SENNOSIDE [Concomitant]
  5. CANDESARTAN CILXETIL [Concomitant]

REACTIONS (11)
  - BACILLUS INFECTION [None]
  - CALCULUS BLADDER [None]
  - DECREASED APPETITE [None]
  - GASTRIC ULCER [None]
  - HELICOBACTER PYLORI IDENTIFICATION TEST POSITIVE [None]
  - MELAENA [None]
  - NAUSEA [None]
  - PYELONEPHRITIS [None]
  - PYELONEPHRITIS ACUTE [None]
  - PYURIA [None]
  - URINARY TRACT INFECTION [None]
